FAERS Safety Report 7444780-X (Version None)
Quarter: 2011Q2

REPORT INFORMATION
  Report Type: 
  Country: None (occurrence: None)
  Receive Date: 20110429
  Receipt Date: 20110425
  Transmission Date: 20111010
  Serious: Yes (Other)
  Sender: FDA-Public Use
  Company Number: US-PFIZER INC-2011090749

PATIENT
  Sex: Female
  Weight: 95.238 kg

DRUGS (1)
  1. AROMASIN [Suspect]
     Indication: BREAST CANCER
     Dosage: UNK

REACTIONS (7)
  - NEUROPATHY PERIPHERAL [None]
  - INSOMNIA [None]
  - THYROID DISORDER [None]
  - PAIN [None]
  - HEADACHE [None]
  - BLOOD CHOLESTEROL INCREASED [None]
  - WEIGHT INCREASED [None]
